FAERS Safety Report 5412821-7 (Version None)
Quarter: 2007Q3

REPORT INFORMATION
  Report Type: 
  Country: None (occurrence: None)
  Receive Date: 20070810
  Receipt Date: 20070801
  Transmission Date: 20080115
  Serious: Yes (Death, Hospitalization)
  Sender: FDA-Public Use
  Company Number: 2007US001802

PATIENT
  Age: 50 Year
  Sex: Male

DRUGS (1)
  1. PROGRAF(TACROLIUM) CAPSULES [Suspect]
     Indication: KIDNEY TRANSPLANT REJECTION
     Dosage: 3 MG, BID
     Dates: start: 20040703, end: 20070711

REACTIONS (1)
  - INTESTINAL PERFORATION [None]
